FAERS Safety Report 10347968 (Version 2)
Quarter: 2016Q2

REPORT INFORMATION
  Report Type: Spontaneous
  Country: US (occurrence: US)
  Receive Date: 20140729
  Receipt Date: 20160530
  Transmission Date: 20160815
  Serious: Yes (Other)
  Sender: FDA-Public Use
  Company Number: US-JNJFOC-20140712204

PATIENT
  Sex: Male
  Weight: 99.79 kg

DRUGS (3)
  1. INVEGA [Suspect]
     Active Substance: PALIPERIDONE
     Indication: PSYCHOTIC DISORDER
     Route: 048
  2. INVEGA [Suspect]
     Active Substance: PALIPERIDONE
     Indication: PSYCHOTIC DISORDER
     Route: 048
  3. INVEGA [Suspect]
     Active Substance: PALIPERIDONE
     Indication: PSYCHOTIC DISORDER
     Dosage: 1.5 MG + 6 MG
     Route: 048

REACTIONS (3)
  - Drug dependence [Not Recovered/Not Resolved]
  - Coeliac disease [Not Recovered/Not Resolved]
  - Wrong technique in product usage process [Unknown]
